FAERS Safety Report 9076815 (Version 1)
Quarter: 2013Q1

REPORT INFORMATION
  Report Type: Report from Study
  Country: US (occurrence: US)
  Receive Date: 20130129
  Receipt Date: 20130129
  Transmission Date: 20140127
  Serious: No
  Sender: FDA-Public Use
  Company Number: US-ABBOTT-12P-163-0941028-00

PATIENT
  Age: 63 None
  Sex: Male
  Weight: 72.64 kg

DRUGS (4)
  1. HUMIRA 40 MG/0.8 ML PEN [Suspect]
     Indication: CROHN^S DISEASE
     Dates: start: 20080308, end: 20120328
  2. HUMIRA 40 MG/0.8 ML PEN [Suspect]
     Dosage: 80 MG LOADING DOSE
     Dates: start: 20120530, end: 20120530
  3. HUMIRA 40 MG/0.8 ML PEN [Suspect]
     Dosage: 80 MG LOADING DOSE
     Dates: start: 20120531, end: 20120531
  4. HUMIRA 40 MG/0.8 ML PEN [Suspect]
     Dosage: 80 MG DAY 15

REACTIONS (1)
  - Localised infection [Recovered/Resolved]
